FAERS Safety Report 12435306 (Version 1)
Quarter: 2016Q2

REPORT INFORMATION
  Report Type: Spontaneous
  Country: US (occurrence: US)
  Receive Date: 20160603
  Receipt Date: 20160603
  Transmission Date: 20160815
  Serious: No
  Sender: FDA-Public Use
  Company Number: US-ROCHE-1742208

PATIENT
  Age: 58 Year
  Sex: Male

DRUGS (2)
  1. RESTORIL [Concomitant]
     Active Substance: TEMAZEPAM
     Indication: INSOMNIA
     Dosage: 30 MG AT NIGHT
     Route: 065
  2. KLONOPIN [Suspect]
     Active Substance: CLONAZEPAM
     Indication: INSOMNIA
     Dosage: 3 TO 4 MG DAILY
     Route: 065

REACTIONS (7)
  - Bowel movement irregularity [Unknown]
  - Prescription drug used without a prescription [Unknown]
  - Insomnia [Unknown]
  - Pain [Unknown]
  - Urinary retention [Unknown]
  - Ill-defined disorder [Unknown]
  - Feeding disorder [Unknown]

NARRATIVE: CASE EVENT DATE: 2004
